FAERS Safety Report 18169654 (Version 2)
Quarter: 2020Q3

REPORT INFORMATION
  Report Type: Spontaneous
  Country: TN (occurrence: TN)
  Receive Date: 20200818
  Receipt Date: 20200828
  Transmission Date: 20201103
  Serious: Yes (Life-Threatening, Other)
  Sender: FDA-Public Use
  Company Number: TN-BAXTER-2020BAX016547

PATIENT
  Sex: Female
  Weight: 64 kg

DRUGS (1)
  1. DIANEAL LOW CALCIUM WITH DEXTROSE [Suspect]
     Active Substance: CALCIUM CHLORIDE\DEXTROSE\MAGNESIUM CHLORIDE\SODIUM CHLORIDE\SODIUM LACTATE
     Indication: PERITONEAL DIALYSIS
     Route: 033
     Dates: start: 201909

REACTIONS (4)
  - Oedema peripheral [Unknown]
  - Ultrafiltration failure [Unknown]
  - Diabetic nephropathy [Unknown]
  - Hypertension [Unknown]
